FAERS Safety Report 21626736 (Version 2)
Quarter: 2022Q4

REPORT INFORMATION
  Report Type: Spontaneous
  Country: JP (occurrence: JP)
  Receive Date: 20221122
  Receipt Date: 20221207
  Transmission Date: 20230112
  Serious: Yes (Other)
  Sender: FDA-Public Use
  Company Number: JP-ASTELLAS-2022JP016898

PATIENT
  Age: 8 Decade
  Sex: Female
  Weight: 61.5 kg

DRUGS (18)
  1. VESICARE [Suspect]
     Active Substance: SOLIFENACIN SUCCINATE
     Indication: Hypertonic bladder
     Dosage: 2.5 MG, ONCE DAILY (AFTER BREAKFAST)
     Route: 048
  2. ZOPICLONE [Suspect]
     Active Substance: ZOPICLONE
     Indication: Insomnia
     Dosage: 7.5 MG, ONCE DAILY (AT BEDTIME)
     Route: 048
  3. LORAZEPAM [Suspect]
     Active Substance: LORAZEPAM
     Indication: Insomnia
     Dosage: 1 MG, AS NEEDED (2-3 TIMES IN ANXIETY)
     Route: 048
  4. LORAZEPAM [Suspect]
     Active Substance: LORAZEPAM
     Indication: Insomnia
     Dosage: 0.5 MG, AS NEEDED (IN ANXIETY (AT BEDTIME))
     Route: 048
  5. TRAZODONE HYDROCHLORIDE [Suspect]
     Active Substance: TRAZODONE HYDROCHLORIDE
     Indication: Product used for unknown indication
     Dosage: 25 MG, ONCE DAILY (AT BEDTIME)
     Route: 048
  6. TRICHLORMETHIAZIDE [Suspect]
     Active Substance: TRICHLORMETHIAZIDE
     Indication: Lymphoedema
     Dosage: 1 MG, ONCE DAILY (AFTER BREAKFAST)
     Route: 048
  7. AZOSEMIDE [Suspect]
     Active Substance: AZOSEMIDE
     Indication: Lymphoedema
     Dosage: 30 MG, ONCE DAILY (AFTER BREAKFAST)
     Route: 048
  8. SUVOREXANT [Concomitant]
     Active Substance: SUVOREXANT
     Indication: Product used for unknown indication
     Dosage: 15 MG, ONCE DAILY (AT BEDTIME)
     Route: 048
  9. TELMISARTAN [Concomitant]
     Active Substance: TELMISARTAN
     Indication: Hypertension
     Dosage: 20 MG, ONCE DAILY (AFTER BREAKFAST)
     Route: 048
  10. TELMISARTAN [Concomitant]
     Active Substance: TELMISARTAN
     Indication: Hypertension
     Dosage: 40 MG, ONCE DAILY (AFTER BREAKFAST)
     Route: 048
  11. AZELNIDIPINE [Concomitant]
     Active Substance: AZELNIDIPINE
     Indication: Product used for unknown indication
     Dosage: 8 MG, ONCE DAILY (AFTER BREAKFAST)
     Route: 048
  12. LIMAPROST [Concomitant]
     Active Substance: LIMAPROST
     Indication: Product used for unknown indication
     Dosage: 5 ?G, EVERY 12 HOURS (AFTER BREAKFAST/DINNER)
     Route: 048
  13. ALFACALCIDOL [Concomitant]
     Active Substance: ALFACALCIDOL
     Indication: Product used for unknown indication
     Dosage: 0.5 ?G, ONCE DAILY (AFTER BREAKFAST)
     Route: 048
  14. PREGABALIN [Concomitant]
     Active Substance: PREGABALIN
     Indication: Product used for unknown indication
     Dosage: 25 MG, EVERY 12 HOURS (AFTER BREAKFAST, AT BEDTIME)
     Route: 048
  15. ATORVASTATIN [Concomitant]
     Active Substance: ATORVASTATIN
     Indication: Dyslipidaemia
     Dosage: 5 MG, ONCE DAILY (AFTER DINNER)
     Route: 048
  16. REBAMIPIDE [Concomitant]
     Active Substance: REBAMIPIDE
     Indication: Product used for unknown indication
     Dosage: 100 MG, EVERY 12 HOURS (AFTER BREAKFAST/DINNER)
     Route: 048
  17. LORNOXICAM [Concomitant]
     Active Substance: LORNOXICAM
     Indication: Product used for unknown indication
     Dosage: 4 MG, EVERY 12 HOURS (AFTER BREAKFAST/DINNER)
     Route: 048
  18. ALENDRONATE [Concomitant]
     Active Substance: ALENDRONATE SODIUM
     Indication: Product used for unknown indication
     Dosage: 35 MG, ONCE WEEKLY (WHEN WAKING UP)
     Route: 048

REACTIONS (5)
  - Dementia [Unknown]
  - Fall [Unknown]
  - Rib fracture [Unknown]
  - Fall [Unknown]
  - Nocturia [Unknown]
